FAERS Safety Report 7257552-6 (Version None)
Quarter: 2011Q1

REPORT INFORMATION
  Report Type: 
  Country: None (occurrence: None)
  Receive Date: 20110129
  Receipt Date: 20100601
  Transmission Date: 20110831
  Serious: No
  Sender: FDA-Public Use
  Company Number: US-ABBOTT-10P-163-0649135-00

PATIENT
  Sex: Female
  Weight: 72.64 kg

DRUGS (13)
  1. CYMBALTA [Concomitant]
     Indication: DEPRESSION
  2. PROPRANOLOL [Concomitant]
     Indication: HYPERTENSION
  3. OMEPRAZOLE [Concomitant]
     Indication: GASTROOESOPHAGEAL REFLUX DISEASE
  4. GABAPENTIN [Concomitant]
     Indication: MYOCLONUS
  5. SIMVASTATIN [Concomitant]
     Indication: BLOOD CHOLESTEROL INCREASED
  6. HUMIRA [Suspect]
     Indication: RHEUMATOID ARTHRITIS
     Route: 058
     Dates: start: 20100101, end: 20100301
  7. XANAX [Concomitant]
     Indication: ANXIETY
  8. AMANTADINE HCL [Concomitant]
     Indication: PRODUCT USED FOR UNKNOWN INDICATION
  9. HUMIRA [Suspect]
  10. AMLODIPINE [Concomitant]
     Indication: HYPERTENSION
  11. LISINOPRIL [Concomitant]
     Indication: HYPERTENSION
  12. LEFLUNOMIDE [Concomitant]
     Indication: RHEUMATOID ARTHRITIS
  13. AMITRIPTYLINE HCL [Concomitant]
     Indication: DEPRESSION

REACTIONS (1)
  - URINARY TRACT INFECTION [None]
